FAERS Safety Report 5411014-7 (Version None)
Quarter: 2007Q3

REPORT INFORMATION
  Report Type: 
  Country: None (occurrence: None)
  Receive Date: 20070810
  Receipt Date: 20070802
  Transmission Date: 20080115
  Serious: Yes (Hospitalization)
  Sender: FDA-Public Use
  Company Number: JP-AVENTIS-200711872JP

PATIENT
  Age: 20 Year
  Sex: Male
  Weight: 57 kg

DRUGS (13)
  1. ALLEGRA [Suspect]
     Route: 048
     Dates: start: 20070510, end: 20070516
  2. ALLEGRA [Suspect]
     Route: 048
     Dates: start: 20070627
  3. CELTECT [Suspect]
     Route: 048
     Dates: start: 20070510, end: 20070516
  4. CELTECT [Suspect]
     Route: 048
     Dates: start: 20070627
  5. FLOMOX [Concomitant]
  6. LIDOCAINE [Concomitant]
  7. ATARAX                             /00058402/ [Concomitant]
     Route: 051
  8. PENTAGIN [Concomitant]
     Route: 051
  9. POTACOL-R [Concomitant]
  10. ADONA                              /00056903/ [Concomitant]
     Route: 051
  11. TRANSAMIN [Concomitant]
     Route: 051
  12. UNKNOWN DRUG [Concomitant]
     Route: 003
     Dates: start: 20070510
  13. UNKNOWN DRUG [Concomitant]
     Route: 003
     Dates: start: 20070627

REACTIONS (1)
  - HEPATITIS ACUTE [None]
